FAERS Safety Report 4479188-2 (Version None)
Quarter: 2004Q4

REPORT INFORMATION
  Report Type: 
  Country: None (occurrence: None)
  Receive Date: 20041019
  Receipt Date: 20041019
  Transmission Date: 20050328
  Serious: Yes (Death)
  Sender: FDA-Public Use
  Company Number: None

PATIENT
  Age: 67 Year
  Sex: Female
  Weight: 56.246 kg

DRUGS (9)
  1. VIAGRA [Suspect]
     Indication: CARDIAC FAILURE
     Dosage: 50 MG PO QHS
     Route: 048
     Dates: start: 20041012, end: 20041014
  2. INSPRA [Concomitant]
  3. DIGITEK [Concomitant]
  4. TORSEMIDE [Concomitant]
  5. GEMFIBROSIL [Concomitant]
  6. KCL TAB [Concomitant]
  7. MAGOX [Concomitant]
  8. ALLOPURINOL [Concomitant]
  9. COUMADIN [Concomitant]

REACTIONS (1)
  - CARDIAC ARREST [None]
